FAERS Safety Report 4749774-0 (Version None)
Quarter: 2005Q3

REPORT INFORMATION
  Report Type: 
  Country: None (occurrence: None)
  Receive Date: 20050822
  Receipt Date: 20040901
  Transmission Date: 20060218
  Serious: Yes (Hospitalization)
  Sender: FDA-Public Use
  Company Number: PHHO2004US12406

PATIENT
  Age: 23 Year
  Sex: Male
  Weight: 58 kg

DRUGS (10)
  1. FTY720 VS MYCOPHENOLATE MOFETIL [Suspect]
     Indication: RENAL TRANSPLANT
     Dosage: CODE NOT BROKEN
     Route: 048
     Dates: start: 20030822
  2. PREDNISONE [Concomitant]
     Indication: RENAL TRANSPLANT
     Dosage: 15 MG, QD
     Route: 048
     Dates: start: 20030822
  3. NEORAL [Suspect]
     Indication: RENAL TRANSPLANT
     Dosage: 50 MG, BID
     Route: 048
  4. NORVASC [Concomitant]
     Dosage: 5 MG, QD
     Route: 048
  5. LISINOPRIL [Concomitant]
     Dosage: 10 MG, QD
     Route: 048
  6. ZANTAC [Concomitant]
     Dosage: 150 MG, BID
     Route: 048
  7. CALCIUM CARBONATE [Concomitant]
     Dosage: 500 MG, BID
     Route: 048
  8. MAGNESIUM OXIDE [Concomitant]
     Dosage: 400 MG, BID
     Route: 048
  9. FOSAMAX [Concomitant]
     Dosage: 70MG WEEKLY
     Route: 048
  10. NIFEREX FORTE [Concomitant]
     Dosage: 150 MG, BID

REACTIONS (7)
  - ABDOMINAL PAIN [None]
  - EAR PAIN [None]
  - NAUSEA [None]
  - PANCYTOPENIA [None]
  - PHARYNGOLARYNGEAL PAIN [None]
  - PNEUMONIA [None]
  - VOMITING [None]
